FAERS Safety Report 4426816-3 (Version None)
Quarter: 2004Q3

REPORT INFORMATION
  Report Type: 
  Country: None (occurrence: None)
  Receive Date: 20040816
  Receipt Date: 20040524
  Transmission Date: 20050211
  Serious: Yes (Other)
  Sender: FDA-Public Use
  Company Number: SE-GLAXOSMITHKLINE-B0334041A

PATIENT
  Age: 51 Year
  Sex: Female

DRUGS (1)
  1. ZYBAN [Suspect]
     Route: 048
     Dates: start: 20040325, end: 20040325

REACTIONS (6)
  - CONVULSION [None]
  - DELIRIUM TREMENS [None]
  - HALLUCINATION [None]
  - OVERDOSE [None]
  - RESTLESSNESS [None]
  - TARDIVE DYSKINESIA [None]
